FAERS Safety Report 21047042 (Version 1)
Quarter: 2022Q3

REPORT INFORMATION
  Report Type: Spontaneous
  Country: CN (occurrence: None)
  Receive Date: 20220706
  Receipt Date: 20220706
  Transmission Date: 20221027
  Serious: Yes (Other)
  Sender: FDA-Public Use
  Company Number: CN-ROCHE-3127480

PATIENT
  Age: 85 Year
  Sex: Female

DRUGS (12)
  1. OBINUTUZUMAB [Suspect]
     Active Substance: OBINUTUZUMAB
     Indication: Diffuse large B-cell lymphoma
     Dosage: DOSES GIVEN ON:31/AU2021, 02/OCT/2021, 05/NOV/2021, 17/JAN/2022, 06/MAR/2022, 15/APR/2022, 24/MAY/20
     Route: 042
  2. RITUXIMAB [Concomitant]
     Active Substance: RITUXIMAB
     Indication: Diffuse large B-cell lymphoma
     Dosage: FIRST CYCLE R + COP (RITUXIMAB, CYCLOPHOSPHAMIDE, VINCRISTINE, PREDNISONE) HALF DOSE?DOSES ON : 16/J
  3. RITUXIMAB [Concomitant]
     Active Substance: RITUXIMAB
     Dosage: DOSES ON ;04/JUN/2021, 19/JUL/2021, D0
  4. CYCLOPHOSPHAMIDE [Concomitant]
     Active Substance: CYCLOPHOSPHAMIDE
     Indication: Diffuse large B-cell lymphoma
     Dosage: R+COP
  5. VINCRISTINE [Concomitant]
     Active Substance: VINCRISTINE
     Indication: Diffuse large B-cell lymphoma
     Dosage: R+COP
  6. PREDNISONE [Concomitant]
     Active Substance: PREDNISONE
     Indication: Diffuse large B-cell lymphoma
     Dosage: R+COP
  7. LENALIDOMIDE [Concomitant]
     Active Substance: LENALIDOMIDE
     Indication: Diffuse large B-cell lymphoma
     Dosage: DOSES ON:16/JUN/2020, 14/JUL/2020, 21/AUG/2020, 23/SEP/2020, 30/OCT/2020, 03/JAN/2021, 22/FEB/2021,
  8. ZANUBRUTINIB [Concomitant]
     Active Substance: ZANUBRUTINIB
     Indication: Diffuse large B-cell lymphoma
     Dosage: DOSES ON: 04/JUN/2021, 19/JUL/2021, 31/AUG/2021, 02/OCT/2021, 05/NOV/2021, 17/ /JAN/2022, 06/MAR2022
     Route: 048
  9. VALSARTAN [Concomitant]
     Active Substance: VALSARTAN
     Indication: Hypertension
     Route: 048
  10. INSULIN NOS [Concomitant]
     Active Substance: INSULIN NOS
     Indication: Diabetes mellitus
     Dosage: BASAL DOSE 12 UNITS
  11. CEFOPERAZONE\SULBACTAM [Concomitant]
     Active Substance: CEFOPERAZONE\SULBACTAM
     Indication: Infection
  12. VORICONAZOLE [Concomitant]
     Active Substance: VORICONAZOLE
     Indication: Infection

REACTIONS (5)
  - Angina pectoris [Unknown]
  - Dyspnoea [Unknown]
  - Myelosuppression [Unknown]
  - Pneumonia [Recovering/Resolving]
  - Off label use [Unknown]
